FAERS Safety Report 12762636 (Version 13)
Quarter: 2017Q4

REPORT INFORMATION
  Report Type: Report from Study
  Country: PL (occurrence: PL)
  Receive Date: 20160920
  Receipt Date: 20171108
  Transmission Date: 20180320
  Serious: Yes (Hospitalization)
  Sender: FDA-Public Use
  Company Number: PL-UCBSA-2016035188

PATIENT
  Age: 62 Year
  Sex: Male
  Weight: 73 kg

DRUGS (11)
  1. CAPTOPRIL. [Concomitant]
     Active Substance: CAPTOPRIL
     Dosage: 25 MG, ONCE DAILY (QD)
     Route: 048
     Dates: start: 20151105, end: 20151105
  2. HYDROCORTISON [Concomitant]
     Active Substance: HYDROCORTISONE
     Indication: HEPATOTOXICITY
     Dosage: UNK
     Dates: start: 20160901
  3. CERTOLIZUMAB PEGOL [Suspect]
     Active Substance: CERTOLIZUMAB PEGOL
     Indication: PSORIASIS
     Dosage: 200 MG, EV 2 WEEKS(QOW)
     Route: 058
     Dates: start: 20150714, end: 20160920
  4. HYDROCHLOROTHIAZIDE W/LOSARTAN [Concomitant]
     Active Substance: HYDROCHLOROTHIAZIDE\LOSARTAN
     Dosage: 125 MG, ONCE DAILY (QD) (100+25 MG)
     Route: 048
     Dates: start: 20151217
  5. PANTOPRAZOLE [Concomitant]
     Active Substance: PANTOPRAZOLE
     Indication: HEPATOTOXICITY
     Dosage: UNK
     Dates: start: 20160901
  6. CAPTOPRIL. [Concomitant]
     Active Substance: CAPTOPRIL
     Dosage: 12.5 MG, ONCE DAILY (QD)
     Route: 048
     Dates: start: 20160907, end: 20160907
  7. NO-SPA [Concomitant]
     Active Substance: DROTAVERINE HYDROCHLORIDE
     Indication: PRODUCT USED FOR UNKNOWN INDICATION
     Dosage: UNK
     Dates: start: 20160901
  8. HYDROCHLOROTHIAZIDE W/LOSARTAN [Concomitant]
     Active Substance: HYDROCHLOROTHIAZIDE\LOSARTAN
     Indication: HYPERTENSION
     Dosage: 125 MG, ONCE DAILY (QD) (100+25 MG)
     Route: 048
     Dates: start: 20151008, end: 20151108
  9. CAPTOPRIL. [Concomitant]
     Active Substance: CAPTOPRIL
     Dosage: 25 MG, ONCE DAILY (QD)
     Route: 048
     Dates: start: 20151130, end: 20151130
  10. CAPTOPRIL. [Concomitant]
     Active Substance: CAPTOPRIL
     Indication: HYPERTENSION
     Dosage: 25 MG, AS NEEDED (PRN)
     Route: 048
     Dates: start: 20140101
  11. CAPTOPRIL. [Concomitant]
     Active Substance: CAPTOPRIL
     Indication: BLOOD PRESSURE INCREASED
     Dosage: 25 MG, ONCE DAILY (QD)
     Route: 048
     Dates: start: 20151008, end: 20151008

REACTIONS (1)
  - Drug-induced liver injury [Recovered/Resolved]

NARRATIVE: CASE EVENT DATE: 20160910
